FAERS Safety Report 6749851-9 (Version None)
Quarter: 2010Q2

REPORT INFORMATION
  Report Type: 
  Country: None (occurrence: None)
  Receive Date: 20100527
  Receipt Date: 20100518
  Transmission Date: 20101027
  Serious: Yes (Hospitalization)
  Sender: FDA-Public Use
  Company Number: 2008US001825

PATIENT
  Age: 56 Year
  Sex: Female
  Weight: 63 kg

DRUGS (7)
  1. AMEVIVE [Suspect]
     Indication: PSORIASIS
     Dosage: 15MG WEEKLY, INTRAMUSCULAR
     Route: 030
     Dates: start: 20041012, end: 20050113
  2. AMEVIVE [Suspect]
     Indication: PSORIASIS
     Dosage: 15MG WEEKLY, INTRAMUSCULAR
     Route: 030
     Dates: start: 20050315, end: 20050607
  3. LYRICA [Concomitant]
  4. NIFEDIPINE [Concomitant]
  5. FOLATE (FOLIC ACID) [Concomitant]
  6. ACTONEL [Concomitant]
  7. CHEMOTHERAPEUTICS NOS [Concomitant]

REACTIONS (3)
  - LOBAR PNEUMONIA [None]
  - PLEURAL EFFUSION [None]
  - SMALL INTESTINAL OBSTRUCTION [None]
